FAERS Safety Report 8541210-1 (Version None)
Quarter: 2012Q3

REPORT INFORMATION
  Report Type: 
  Country: None (occurrence: None)
  Receive Date: 20120726
  Receipt Date: 20120717
  Transmission Date: 20120928
  Serious: Yes (Hospitalization)
  Sender: FDA-Public Use
  Company Number: SE-JNJFOC-20120400923

PATIENT
  Age: 57 Year
  Sex: Female

DRUGS (4)
  1. CONCERTA [Suspect]
     Indication: ATTENTION DEFICIT/HYPERACTIVITY DISORDER
     Route: 048
     Dates: start: 20111212
  2. OTHER DRUGS (UNSPECIFIED) [Concomitant]
     Indication: PAIN MANAGEMENT
     Route: 065
  3. CONCERTA [Suspect]
     Indication: ASPERGER'S DISORDER
     Route: 048
     Dates: start: 20111212
  4. SERTRALINE HYDROCHLORIDE [Concomitant]
     Indication: PRODUCT USED FOR UNKNOWN INDICATION
     Route: 065

REACTIONS (3)
  - CEREBRAL THROMBOSIS [None]
  - CEREBROVASCULAR ACCIDENT [None]
  - LIPIDS INCREASED [None]
